FAERS Safety Report 20651078 (Version 2)
Quarter: 2022Q2

REPORT INFORMATION
  Report Type: Spontaneous
  Country: US (occurrence: US)
  Receive Date: 20220329
  Receipt Date: 20220411
  Transmission Date: 20220721
  Serious: Yes (Other)
  Sender: FDA-Public Use
  Company Number: US-LUNDBECK-DKLU3046174

PATIENT
  Age: 68 Year
  Sex: Male

DRUGS (4)
  1. NORTHERA [Suspect]
     Active Substance: DROXIDOPA
     Indication: Orthostatic hypotension
     Route: 048
     Dates: start: 20210730
  2. NORTHERA [Suspect]
     Active Substance: DROXIDOPA
     Indication: Parkinson^s disease
     Route: 048
     Dates: start: 20210730
  3. NORTHERA [Suspect]
     Active Substance: DROXIDOPA
     Indication: Gaucher^s disease
  4. NORTHERA [Suspect]
     Active Substance: DROXIDOPA
     Indication: Lipidosis

REACTIONS (9)
  - Loss of consciousness [Recovered/Resolved]
  - Blood pressure orthostatic decreased [Unknown]
  - Supine hypertension [Unknown]
  - Blood pressure fluctuation [Unknown]
  - Malaise [Unknown]
  - Hypertension [Unknown]
  - Osteoarthritis [Unknown]
  - Hypotension [Unknown]
  - Product dose omission issue [Unknown]

NARRATIVE: CASE EVENT DATE: 20220314
